FAERS Safety Report 7453200-0 (Version None)
Quarter: 2011Q2

REPORT INFORMATION
  Report Type: 
  Country: None (occurrence: None)
  Receive Date: 20110502
  Receipt Date: 20110428
  Transmission Date: 20111010
  Serious: No
  Sender: FDA-Public Use
  Company Number: US-PFIZER INC-2011082693

PATIENT
  Sex: Female
  Weight: 66 kg

DRUGS (4)
  1. LYRICA [Suspect]
     Indication: FIBROMYALGIA
     Dosage: 200MG DAILY
     Route: 048
     Dates: start: 20110201
  2. HYDROCODONE [Suspect]
     Indication: PAIN
     Dosage: UNK
  3. LORAZEPAM [Concomitant]
     Indication: ANXIETY
     Dosage: 0.5 MG, AS NEEDED
     Route: 048
  4. VITAMIN D [Concomitant]
     Dosage: UNK

REACTIONS (4)
  - WEIGHT INCREASED [None]
  - INSOMNIA [None]
  - DRUG INEFFECTIVE [None]
  - BREAST PAIN [None]
